FAERS Safety Report 9565463 (Version 1)
Quarter: 2013Q3

REPORT INFORMATION
  Report Type: Other
  Country: IN (occurrence: IN)
  Receive Date: 20130930
  Receipt Date: 20130930
  Transmission Date: 20140515
  Serious: Yes (Death)
  Sender: FDA-Public Use
  Company Number: IN-US-EMD SERONO, INC.-7238557

PATIENT
  Sex: Female

DRUGS (1)
  1. CHORIOGONADOTROPIN ALFA [Suspect]
     Indication: OVULATION INDUCTION
     Route: 064

REACTIONS (2)
  - Placental infarction [Fatal]
  - Umbilical cord abnormality [Fatal]
